FAERS Safety Report 18655520 (Version 1)
Quarter: 2020Q4

REPORT INFORMATION
  Report Type: Spontaneous
  Country: BR (occurrence: BR)
  Receive Date: 20201223
  Receipt Date: 20201223
  Transmission Date: 20210114
  Serious: Yes (Other)
  Sender: FDA-Public Use
  Company Number: BR-TAKEDA-2020TUS056819

PATIENT
  Sex: Female
  Weight: 68 kg

DRUGS (1)
  1. DEXILANT [Suspect]
     Active Substance: DEXLANSOPRAZOLE
     Indication: GASTROOESOPHAGEAL REFLUX DISEASE
     Dosage: 60 MILLIGRAM, QD
     Route: 065

REACTIONS (4)
  - Abdominal pain [Recovered/Resolved]
  - Gastrointestinal infection [Unknown]
  - Off label use [Unknown]
  - Diarrhoea [Recovered/Resolved]
